FAERS Safety Report 8314135-4 (Version None)
Quarter: 2012Q2

REPORT INFORMATION
  Report Type: 
  Country: None (occurrence: None)
  Receive Date: 20120426
  Receipt Date: 20120420
  Transmission Date: 20120825
  Serious: Yes (Hospitalization, Other)
  Sender: FDA-Public Use
  Company Number: US-AMGEN-USASP2011064753

PATIENT
  Age: 77 Year
  Sex: Female

DRUGS (15)
  1. FOSAMAX [Concomitant]
     Indication: OSTEOPOROSIS
     Dosage: 70 MG, QWK
     Route: 048
     Dates: start: 20090203
  2. OXYBUTYNIN CHLORIDE [Concomitant]
     Dosage: 5 MG, QHS
     Route: 048
     Dates: start: 20110803
  3. TRAMADOL HCL [Concomitant]
     Indication: PAIN
     Dosage: 50 MG, PRN
     Route: 048
     Dates: start: 20100716
  4. METHOTREXATE PRESERVATIVE FREE [Concomitant]
     Indication: RHEUMATOID ARTHRITIS
     Dosage: 20 MG, QWK
     Route: 058
     Dates: start: 20020101, end: 20120307
  5. ENBREL [Suspect]
     Indication: RHEUMATOID ARTHRITIS
     Dosage: 50 MG, QWK
     Route: 058
     Dates: start: 20050705, end: 20120307
  6. DILTIAZEM HCL [Concomitant]
     Dosage: 240 MG, QD
     Route: 048
     Dates: start: 20100129
  7. OMEPRAZOLE [Concomitant]
     Dosage: 20 MG, QD
     Route: 048
     Dates: start: 20090429
  8. TRAMADOL HCL [Concomitant]
     Indication: OSTEOARTHRITIS
  9. FOLIC ACID [Concomitant]
     Dosage: 1 MG, QD
     Route: 048
     Dates: start: 20100120
  10. LORAZEPAM [Concomitant]
     Dosage: 0.5 MG, PRN
     Route: 048
     Dates: start: 20090429
  11. ESTRACE [Concomitant]
     Dosage: 0.1 MG, UNK
     Route: 067
     Dates: start: 20090514
  12. HYDROCHLOROTHIAZIDE [Concomitant]
     Dosage: 12.5 MG, QD
     Route: 048
     Dates: start: 20110427
  13. HYDROCODONE BITARTRATE + ACETAMINOPHEN [Concomitant]
     Indication: PAIN
     Dosage: UNK UNK, PRN
     Route: 048
     Dates: start: 20111202
  14. ATENOLOL [Concomitant]
     Dosage: UNK UNK, QD
     Route: 048
     Dates: start: 20101222
  15. PLAQUENIL [Concomitant]
     Dosage: UNK UNK, QD
     Route: 048
     Dates: start: 20020101

REACTIONS (11)
  - UTERINE PROLAPSE [None]
  - NECK PAIN [None]
  - HUMERUS FRACTURE [None]
  - ARTHRALGIA [None]
  - OEDEMA PERIPHERAL [None]
  - BACK PAIN [None]
  - URINARY TRACT INFECTION ENTEROCOCCAL [None]
  - PELVIC FRACTURE [None]
  - FALL [None]
  - MELANOCYTIC NAEVUS [None]
  - MICTURITION DISORDER [None]
